FAERS Safety Report 13003419 (Version 3)
Quarter: 2017Q1

REPORT INFORMATION
  Report Type: Spontaneous
  Country: US (occurrence: US)
  Receive Date: 20161206
  Receipt Date: 20170224
  Transmission Date: 20170428
  Serious: No
  Sender: FDA-Public Use
  Company Number: US-GLAXOSMITHKLINE-US2016180196

PATIENT
  Age: 85 Year
  Sex: Male

DRUGS (2)
  1. FLOVENT DISKUS [Suspect]
     Active Substance: FLUTICASONE PROPIONATE
     Indication: DYSPNOEA
     Dosage: 1 PUFF(S), BID
     Route: 055
     Dates: start: 2014
  2. LOW DOSE ASPIRIN [Concomitant]
     Active Substance: ASPIRIN

REACTIONS (4)
  - Drug ineffective [Unknown]
  - Product cleaning inadequate [Unknown]
  - Device use error [Unknown]
  - Product quality issue [Unknown]

NARRATIVE: CASE EVENT DATE: 20161112
